FAERS Safety Report 4326345-1 (Version None)
Quarter: 2004Q1

REPORT INFORMATION
  Report Type: 
  Country: None (occurrence: None)
  Receive Date: 20040329
  Receipt Date: 20040329
  Transmission Date: 20041129
  Serious: Yes (Other)
  Sender: FDA-Public Use
  Company Number: None

PATIENT
  Age: 21 Year
  Sex: Female
  Weight: 63.5036 kg

DRUGS (1)
  1. TRI-SPRINTEC BARR LABORATORY [Suspect]
     Indication: CONTRACEPTION
     Dosage: 1 TABLET BY MOUTH ORAL
     Route: 048
     Dates: start: 20040228, end: 20040316

REACTIONS (2)
  - MENSTRUAL DISORDER [None]
  - PHARMACEUTICAL PRODUCT COMPLAINT [None]
